FAERS Safety Report 23045383 (Version 3)
Quarter: 2023Q4

REPORT INFORMATION
  Report Type: Spontaneous
  Country: JP (occurrence: JP)
  Receive Date: 20231009
  Receipt Date: 20231128
  Transmission Date: 20240109
  Serious: Yes (Death, Other)
  Sender: FDA-Public Use
  Company Number: JP-ONO-2023JP024763

PATIENT
  Age: 8 Decade
  Sex: Male

DRUGS (2)
  1. YERVOY [Suspect]
     Active Substance: IPILIMUMAB
     Indication: Metastatic renal cell carcinoma
     Route: 041
     Dates: start: 20210521, end: 20210720
  2. OPDIVO [Suspect]
     Active Substance: NIVOLUMAB
     Indication: Metastatic renal cell carcinoma
     Dosage: TOTAL NUMBER OF DOSES: 3 TIMES
     Route: 041
     Dates: start: 20210521, end: 20210720

REACTIONS (2)
  - Immune-mediated hepatitis [Fatal]
  - Immune-mediated cholangitis [Fatal]

NARRATIVE: CASE EVENT DATE: 20210802
